FAERS Safety Report 5352048-0 (Version None)
Quarter: 2007Q2

REPORT INFORMATION
  Report Type: 
  Country: None (occurrence: None)
  Receive Date: 20070611
  Receipt Date: 20070606
  Transmission Date: 20071010
  Serious: Yes (Death, Other)
  Sender: FDA-Public Use
  Company Number: PHBS2007JP08199

PATIENT
  Age: 55 Year
  Sex: Male

DRUGS (8)
  1. COMTAN [Suspect]
     Indication: PARKINSON'S DISEASE
     Dosage: 600 MG/D
     Route: 048
     Dates: start: 20070423
  2. LEVODOPA [Concomitant]
  3. SELEGILINE HCL [Concomitant]
  4. PERMAX [Concomitant]
     Dosage: 750 UG/D
     Route: 048
     Dates: start: 20041102
  5. MENESIT [Concomitant]
     Dosage: 800 MG/D
     Route: 048
     Dates: start: 20041102
  6. FP [Concomitant]
     Dosage: 2.5 MG/D
     Route: 048
     Dates: start: 20041102
  7. ARTANE [Concomitant]
     Dosage: 4 MG/D
     Route: 048
     Dates: start: 20041102
  8. NAUZELIN [Concomitant]
     Dosage: 30 MG/D
     Route: 048
     Dates: start: 20041102

REACTIONS (3)
  - DEATH [None]
  - DRUG INEFFECTIVE [None]
  - HALLUCINATION [None]
